FAERS Safety Report 4493054-8 (Version None)
Quarter: 2004Q4

REPORT INFORMATION
  Report Type: 
  Country: None (occurrence: None)
  Receive Date: 20041101
  Receipt Date: 20041022
  Transmission Date: 20050328
  Serious: Yes (Hospitalization)
  Sender: FDA-Public Use
  Company Number: 200411010BVD

PATIENT
  Age: 77 Year
  Sex: Male
  Weight: 87 kg

DRUGS (6)
  1. AVELOX [Suspect]
     Indication: BRONCHITIS ACUTE
     Dosage: 400 MG, TOTAL DAILY, ORAL
     Route: 048
     Dates: start: 20040824, end: 20040826
  2. AVELOX [Suspect]
     Indication: CONDITION AGGRAVATED
     Dosage: 400 MG, TOTAL DAILY, ORAL
     Route: 048
     Dates: start: 20040824, end: 20040826
  3. DECORTIN [Concomitant]
  4. TELMISARTAN [Concomitant]
  5. MIFLONID [Concomitant]
  6. FORADIL [Concomitant]

REACTIONS (1)
  - GASTROENTERITIS [None]
